FAERS Safety Report 25731504 (Version 2)
Quarter: 2025Q3

REPORT INFORMATION
  Report Type: Other
  Country: US (occurrence: US)
  Receive Date: 20250827
  Receipt Date: 20250918
  Transmission Date: 20251020
  Serious: No
  Sender: NOVA LABORATORIES LIMITED
  Company Number: US-Nova Laboratories Limited-2183315

PATIENT
  Age: 54 Year
  Sex: Female

DRUGS (3)
  1. XROMI [Suspect]
     Active Substance: HYDROXYUREA
     Indication: Essential thrombocythaemia
  2. ANAGRELIDE. [Concomitant]
     Active Substance: ANAGRELIDE HYDROCHLORIDE
  3. RUXOLITINIB [Concomitant]
     Active Substance: RUXOLITINIB

REACTIONS (2)
  - Drug ineffective [Unknown]
  - Off label use [Unknown]
